FAERS Safety Report 24190176 (Version 1)
Quarter: 2024Q3

REPORT INFORMATION
  Report Type: Spontaneous
  Country: US (occurrence: US)
  Receive Date: 20240808
  Receipt Date: 20240808
  Transmission Date: 20241017
  Serious: No
  Sender: PFIZER
  Company Number: US-PFIZER INC-202400230965

PATIENT
  Age: 70 Year
  Sex: Female

DRUGS (3)
  1. PAXLOVID [Suspect]
     Active Substance: NIRMATRELVIR\RITONAVIR
     Indication: COVID-19 treatment
     Dosage: 150MG; 100MG TWICE A DAY FOR 5 DAYS
     Dates: start: 20240728, end: 20240803
  2. PAXLOVID [Suspect]
     Active Substance: NIRMATRELVIR\RITONAVIR
     Dosage: 150MG; 100MG TWICE A DAY FOR 5 DAYS
     Dates: start: 20240728, end: 20240803
  3. ATORVASTATIN [Concomitant]
     Active Substance: ATORVASTATIN
     Dosage: 10 MG, DAILY
     Dates: start: 20230717, end: 20240726

REACTIONS (3)
  - Oropharyngeal pain [Unknown]
  - Myalgia [Unknown]
  - Inappropriate schedule of product administration [Unknown]

NARRATIVE: CASE EVENT DATE: 20240728
